FAERS Safety Report 7254923-9 (Version None)
Quarter: 2011Q1

REPORT INFORMATION
  Report Type: 
  Country: None (occurrence: None)
  Receive Date: 20110129
  Receipt Date: 20100204
  Transmission Date: 20110831
  Serious: No
  Sender: FDA-Public Use
  Company Number: US-ABBOTT-10P-163-0624674-00

PATIENT
  Sex: Female
  Weight: 74.91 kg

DRUGS (2)
  1. GABAPENTIN [Concomitant]
     Indication: PAIN IN EXTREMITY
     Route: 048
  2. HUMIRA [Suspect]
     Indication: RHEUMATOID ARTHRITIS
     Route: 058
     Dates: start: 20080101

REACTIONS (6)
  - SKIN FISSURES [None]
  - ERYTHEMA [None]
  - SKIN EXFOLIATION [None]
  - PAIN IN EXTREMITY [None]
  - DRY SKIN [None]
  - PAIN OF SKIN [None]
